FAERS Safety Report 24220621 (Version 3)
Quarter: 2024Q4

REPORT INFORMATION
  Report Type: Report from Study
  Country: CA (occurrence: CA)
  Receive Date: 20240818
  Receipt Date: 20241023
  Transmission Date: 20250114
  Serious: Yes (Disabling, Other)
  Sender: NOVARTIS
  Company Number: CA-002147023-NVSC2024CA116709

PATIENT
  Age: 33 Year
  Sex: Female

DRUGS (3)
  1. KESIMPTA [Suspect]
     Active Substance: OFATUMUMAB
     Indication: Relapsing-remitting multiple sclerosis
     Dosage: 20 MG, (3 INITIAL DOSES THEN ONCE A MONTH)
     Route: 058
     Dates: start: 20240401
  2. KESIMPTA [Suspect]
     Active Substance: OFATUMUMAB
     Indication: Multiple sclerosis
     Dosage: 20 MG, QW
     Route: 058
     Dates: start: 20240530
  3. KESIMPTA [Suspect]
     Active Substance: OFATUMUMAB
     Dosage: 1 INJECTION IN 20 MG/0.4 ML, QMO
     Route: 058

REACTIONS (12)
  - Decreased appetite [Not Recovered/Not Resolved]
  - Insomnia [Not Recovered/Not Resolved]
  - Fatigue [Not Recovered/Not Resolved]
  - Hypotension [Not Recovered/Not Resolved]
  - Multiple sclerosis relapse [Unknown]
  - Paraesthesia [Unknown]
  - Influenza like illness [Unknown]
  - Headache [Unknown]
  - Myalgia [Unknown]
  - Chills [Unknown]
  - Pyrexia [Unknown]
  - Arthralgia [Unknown]

NARRATIVE: CASE EVENT DATE: 20240530
